FAERS Safety Report 9114506 (Version 1)
Quarter: 2013Q1

REPORT INFORMATION
  Report Type: Report from Study
  Country: US (occurrence: US)
  Receive Date: 20130129
  Receipt Date: 20130129
  Transmission Date: 20140127
  Serious: No
  Sender: FDA-Public Use
  Company Number: US-ABBOTT-12P-163-0942213-00

PATIENT
  Age: 18 Year
  Sex: Male
  Weight: 56.75 kg

DRUGS (3)
  1. HUMIRA 40 MG/0.8 ML PEN [Suspect]
     Indication: CROHN^S DISEASE
     Route: 058
     Dates: start: 20111217, end: 20120517
  2. HUMIRA 40 MG/0.8 ML PEN [Suspect]
     Dosage: 160 MG LOADING (80MG DAY1 AND 80MG DAY2)
     Route: 058
     Dates: start: 20120503, end: 20120504
  3. HUMIRA 40 MG/0.8 ML PEN [Suspect]
     Route: 058
     Dates: start: 20120531

REACTIONS (1)
  - Incorrect dose administered [Unknown]
